FAERS Safety Report 9434625 (Version 1)
Quarter: 2013Q3

REPORT INFORMATION
  Report Type: Spontaneous
  Country: US (occurrence: US)
  Receive Date: 20130801
  Receipt Date: 20130801
  Transmission Date: 20140515
  Serious: No
  Sender: FDA-Public Use
  Company Number: US-PFIZER INC-2013221602

PATIENT
  Age: 86 Year
  Sex: Female

DRUGS (1)
  1. AMLODIPINE BESILATE [Suspect]
     Dosage: UNK

REACTIONS (4)
  - Malaise [Unknown]
  - Oropharyngeal pain [Unknown]
  - Asthenia [Unknown]
  - Nasal congestion [Unknown]
